FAERS Safety Report 17453457 (Version 1)
Quarter: 2020Q1

REPORT INFORMATION
  Report Type: Other
  Country: US (occurrence: NL)
  Receive Date: 20200224
  Receipt Date: 20200224
  Transmission Date: 20200409
  Serious: Yes (Hospitalization, Other)
  Sender: FDA-Public Use
  Company Number: NL-BRECKENRIDGE PHARMACEUTICAL, INC.-2080844

PATIENT
  Age: 34 Year
  Sex: Female

DRUGS (1)
  1. OMEPRAZOLE. [Suspect]
     Active Substance: OMEPRAZOLE
     Indication: GASTROOESOPHAGEAL REFLUX DISEASE
     Route: 048

REACTIONS (5)
  - Stomatitis [None]
  - Traumatic haematoma [None]
  - Candida infection [None]
  - Telangiectasia [None]
  - Cheilitis [None]
